FAERS Safety Report 4322611-4 (Version None)
Quarter: 2004Q1

REPORT INFORMATION
  Report Type: 
  Country: None (occurrence: None)
  Receive Date: 20040324
  Receipt Date: 20040315
  Transmission Date: 20041129
  Serious: Yes (Life-Threatening, Hospitalization)
  Sender: FDA-Public Use
  Company Number: WAES 0403FRA00055

PATIENT
  Age: 61 Year
  Sex: Female

DRUGS (6)
  1. ASPIRIN SODIUM [Concomitant]
     Route: 048
  2. CALCIUM CARBONATE AND CALCIUM GLUCONATE AND CALCIUM LACTATE [Concomitant]
     Route: 048
  3. CYPROTERONE ACETATE [Suspect]
     Route: 048
     Dates: end: 19920607
  4. POTASSIUM CHLORIDE [Concomitant]
     Route: 048
  5. PREDNISONE [Concomitant]
     Route: 048
  6. THIABENDAZOLE [Suspect]
     Indication: STRONGYLOIDIASIS
     Route: 048
     Dates: end: 19920525

REACTIONS (3)
  - CONJUNCTIVITIS [None]
  - MOUTH ULCERATION [None]
  - TOXIC EPIDERMAL NECROLYSIS [None]
